FAERS Safety Report 15410248 (Version 1)
Quarter: 2018Q3

REPORT INFORMATION
  Report Type: Report from Study
  Country: IT (occurrence: IT)
  Receive Date: 20180921
  Receipt Date: 20180921
  Transmission Date: 20181010
  Serious: Yes (Hospitalization)
  Sender: FDA-Public Use
  Company Number: IT-TEVA-2018-IT-956811

PATIENT
  Age: 58 Year
  Sex: Male

DRUGS (1)
  1. LEVOFLOXACIN. [Suspect]
     Active Substance: LEVOFLOXACIN
     Dosage: 1500 MILLIGRAM DAILY;
     Route: 048
     Dates: start: 20180724, end: 20180726

REACTIONS (2)
  - Paraesthesia [Unknown]
  - Medication error [Unknown]

NARRATIVE: CASE EVENT DATE: 20180724
